FAERS Safety Report 5144653-1 (Version None)
Quarter: 2006Q4

REPORT INFORMATION
  Report Type: 
  Country: None (occurrence: None)
  Receive Date: 20061031
  Receipt Date: 20061013
  Transmission Date: 20070319
  Serious: Yes (Other)
  Sender: FDA-Public Use
  Company Number: LU200610004405

PATIENT
  Age: 6 Year
  Sex: Female

DRUGS (1)
  1. HUMATROPE [Suspect]
     Indication: GROWTH HORMONE DEFICIENCY
     Dosage: 25 UNK, DAILY (1/D), UNK

REACTIONS (2)
  - MITOCHONDRIAL CYTOPATHY [None]
  - PANCREATITIS ACUTE [None]
